FAERS Safety Report 5510029-8 (Version None)
Quarter: 2007Q4

REPORT INFORMATION
  Report Type: 
  Country: None (occurrence: None)
  Receive Date: 20071108
  Receipt Date: 20070809
  Transmission Date: 20080405
  Serious: No
  Sender: FDA-Public Use
  Company Number: US-ABBOTT-07P-163-0377614-00

PATIENT
  Sex: Female

DRUGS (3)
  1. TARKA [Suspect]
     Indication: BLOOD PRESSURE
  2. CLONIDINE [Suspect]
     Indication: BLOOD PRESSURE
  3. MAXZIDE [Suspect]
     Indication: BLOOD PRESSURE

REACTIONS (1)
  - HYPERTENSION [None]
